FAERS Safety Report 8545249-1 (Version None)
Quarter: 2012Q3

REPORT INFORMATION
  Report Type: 
  Country: None (occurrence: None)
  Receive Date: 20120727
  Receipt Date: 20120723
  Transmission Date: 20120928
  Serious: Yes (Other)
  Sender: FDA-Public Use
  Company Number: PHHY2012BR064323

PATIENT
  Age: 42 Year
  Sex: Male

DRUGS (2)
  1. CLOZAPINE [Suspect]
     Indication: SCHIZOPHRENIA
     Dosage: 3 DF, DAILY (1 TABLET IN THE MORNING AND 2 TABLETS AT NIGHT)
     Dates: start: 20020101
  2. CLOZAPINE [Suspect]
     Dosage: 5 DF, (2 TABLETS AT MORNING AND 3 TABLETS AT NIGHT)

REACTIONS (5)
  - ILEUS PARALYTIC [None]
  - AGITATION [None]
  - VITELLO-INTESTINAL DUCT REMNANT [None]
  - PSYCHOTIC DISORDER [None]
  - APPENDICITIS [None]
